FAERS Safety Report 12717589 (Version 2)
Quarter: 2016Q3

REPORT INFORMATION
  Report Type: Report from Study
  Country: US (occurrence: US)
  Receive Date: 20160906
  Receipt Date: 20160915
  Transmission Date: 20161109
  Serious: Yes (Other)
  Sender: FDA-Public Use
  Company Number: US-BAYER-2016-167130

PATIENT
  Age: 62 Year
  Sex: Male

DRUGS (3)
  1. STIVARGA [Suspect]
     Active Substance: REGORAFENIB
     Indication: COLON CANCER STAGE IV
     Dosage: DAILY DOSE 160MG
     Route: 048
     Dates: start: 20160816, end: 201608
  2. STIVARGA [Suspect]
     Active Substance: REGORAFENIB
     Indication: METASTASES TO LIVER
     Dosage: DAILY DOSE 120 MG
     Route: 048
     Dates: start: 20160823, end: 2016
  3. STIVARGA [Suspect]
     Active Substance: REGORAFENIB
     Indication: METASTASES TO BILIARY TRACT
     Dosage: DAILY DOSE 160MG
     Route: 048

REACTIONS (7)
  - Oropharyngeal pain [None]
  - Nausea [None]
  - Dysphonia [None]
  - Unevaluable event [None]
  - Fatigue [None]
  - Activities of daily living impaired [None]
  - Muscular weakness [None]
